FAERS Safety Report 15639216 (Version 1)
Quarter: 2018Q4

REPORT INFORMATION
  Report Type: Spontaneous
  Country: US (occurrence: US)
  Receive Date: 20181114
  Receipt Date: 20181114
  Transmission Date: 20190205
  Serious: No
  Sender: FDA-Public Use
  Company Number: None

PATIENT
  Age: 59 Year
  Sex: Female

DRUGS (17)
  1. APRISO [Concomitant]
     Active Substance: MESALAMINE
  2. CETIRIZINE [Concomitant]
     Active Substance: CETIRIZINE HYDROCHLORIDE
  3. DUREZOL [Concomitant]
     Active Substance: DIFLUPREDNATE
  4. CARVEDILOL. [Concomitant]
     Active Substance: CARVEDILOL
  5. NEOMYCIN. [Concomitant]
     Active Substance: NEOMYCIN
  6. ZYRTEC [Concomitant]
     Active Substance: CETIRIZINE HYDROCHLORIDE
  7. HUMIRA [Suspect]
     Active Substance: ADALIMUMAB
     Indication: IDIOPATHIC URTICARIA
     Dosage: ?          OTHER FREQUENCY:QOW;?
     Route: 058
     Dates: start: 20170323
  8. ATROPINE. [Concomitant]
     Active Substance: ATROPINE
  9. DORZOLAMIDE [Concomitant]
     Active Substance: DORZOLAMIDE
  10. POLYMYXIN B. [Concomitant]
     Active Substance: POLYMYXIN B
  11. PREDNISONE. [Concomitant]
     Active Substance: PREDNISONE
  12. ACETAZOLAMID [Concomitant]
     Active Substance: ACETAZOLAMIDE
  13. ALPHAGAN P [Concomitant]
     Active Substance: BRIMONIDINE TARTRATE
  14. AMLODIPINE [Concomitant]
     Active Substance: AMLODIPINE BESYLATE
  15. FUROSEMIDE. [Concomitant]
     Active Substance: FUROSEMIDE
  16. HYDROXYCHLOR [Concomitant]
     Active Substance: HYDROXYCHLOROQUINE
  17. TIMOLOL. [Concomitant]
     Active Substance: TIMOLOL

REACTIONS (3)
  - Cough [None]
  - Pneumonitis [None]
  - Dyspnoea [None]

NARRATIVE: CASE EVENT DATE: 20181106
